FAERS Safety Report 20542283 (Version 1)
Quarter: 2022Q1

REPORT INFORMATION
  Report Type: Spontaneous
  Country: AU (occurrence: AU)
  Receive Date: 20220302
  Receipt Date: 20220302
  Transmission Date: 20220423
  Serious: Yes (Other)
  Sender: FDA-Public Use
  Company Number: AU-NAPPMUNDI-GBR-2022-0095185

PATIENT
  Age: 63 Year
  Sex: Male

DRUGS (6)
  1. NORSPAN [Suspect]
     Active Substance: BUPRENORPHINE
     Indication: Back pain
     Dosage: 1 PATCH, WEEKLY (STRENGTH 15MG) ON MONDAY
     Route: 062
  2. NORSPAN [Suspect]
     Active Substance: BUPRENORPHINE
     Indication: Sciatica
     Dosage: 1 PATCH, WEEKLY (STRENGTH 15MG) ON THURSDAY
     Route: 062
  3. NORSPAN [Suspect]
     Active Substance: BUPRENORPHINE
     Dosage: 25 MG, WEEKLY
     Route: 062
  4. NORSPAN [Suspect]
     Active Substance: BUPRENORPHINE
     Dosage: UNK
     Route: 062
     Dates: start: 2014
  5. NORSPAN [Suspect]
     Active Substance: BUPRENORPHINE
     Dosage: 1 PATCH, WEEKLY (STRENGTH 15MG)
     Route: 062
     Dates: start: 2010
  6. NORSPAN [Suspect]
     Active Substance: BUPRENORPHINE
     Dosage: UNK
     Route: 062
     Dates: start: 2010

REACTIONS (19)
  - Type 2 diabetes mellitus [Unknown]
  - Thyroid disorder [Unknown]
  - Therapeutic response increased [Unknown]
  - Incorrect drug administration rate [Unknown]
  - Pain in extremity [Unknown]
  - Mood altered [Unknown]
  - Dental caries [Unknown]
  - Wrong technique in product usage process [Unknown]
  - Product adhesion issue [Unknown]
  - Blood cholesterol abnormal [Unknown]
  - Drug withdrawal syndrome [Unknown]
  - Hyperhidrosis [Unknown]
  - Application site mass [Unknown]
  - Application site rash [Unknown]
  - Palpitations [Unknown]
  - Application site haemorrhage [Unknown]
  - Euphoric mood [Unknown]
  - Vertigo [Unknown]
  - Insomnia [Unknown]

NARRATIVE: CASE EVENT DATE: 20140101
